FAERS Safety Report 9631079 (Version 1)
Quarter: 2013Q4

REPORT INFORMATION
  Report Type: Spontaneous
  Country: US (occurrence: None)
  Receive Date: 20131016
  Receipt Date: 20131016
  Transmission Date: 20140711
  Serious: Yes (Hospitalization)
  Sender: FDA-Public Use
  Company Number: None

PATIENT
  Age: 40 None
  Sex: Female
  Weight: 65 kg

DRUGS (10)
  1. SEPTRA DS [Suspect]
     Indication: URINARY TRACT INFECTION
     Route: 048
     Dates: start: 20130907, end: 20130915
  2. ATIVAN [Concomitant]
  3. KEPPRA [Concomitant]
  4. PRILOSEC [Concomitant]
  5. ZOLOFT [Concomitant]
  6. ZANTAC [Concomitant]
  7. ZYRON [Concomitant]
  8. ATENOLOL [Concomitant]
  9. ZOLOFT [Concomitant]
  10. FLEXERIL [Concomitant]

REACTIONS (6)
  - Transaminases increased [None]
  - Nausea [None]
  - Vomiting [None]
  - Photophobia [None]
  - Pyrexia [None]
  - Headache [None]
